FAERS Safety Report 5389878-5 (Version None)
Quarter: 2007Q3

REPORT INFORMATION
  Report Type: 
  Country: None (occurrence: None)
  Receive Date: 20070718
  Receipt Date: 20070709
  Transmission Date: 20080115
  Serious: Yes (Hospitalization)
  Sender: FDA-Public Use
  Company Number: PHEH2007US09752

PATIENT
  Age: 45 Year
  Sex: Male

DRUGS (18)
  1. NEORAL [Suspect]
     Indication: RENAL TRANSPLANT
     Dosage: 700 MG, UNK
     Dates: start: 20060924
  2. CELLCEPT [Suspect]
     Indication: RENAL TRANSPLANT
     Dosage: 2000 MG, QD
     Dates: start: 20060923
  3. CELLCEPT [Suspect]
     Dosage: 500 MG, BID
  4. PREDNISONE [Suspect]
     Indication: RENAL TRANSPLANT
     Dosage: 10 MG, QD
     Dates: start: 20060925
  5. VITAMIN CAP [Concomitant]
     Dates: start: 20060927
  6. ELAVIL [Concomitant]
     Dates: start: 20060927
  7. ZOLOFT [Concomitant]
     Dates: start: 20060927
  8. LOPID [Concomitant]
     Dates: start: 20060927
  9. HUMALOG [Concomitant]
     Dates: start: 20061009
  10. PROCARDIA XL [Concomitant]
     Dates: start: 20061016
  11. NEXIUM [Concomitant]
     Dates: start: 20061023
  12. MAGNESIUM OXIDE [Concomitant]
     Dates: start: 20061102
  13. TOPROL-XL [Concomitant]
     Dates: start: 20061204
  14. LANTUS [Concomitant]
     Dates: start: 20070104
  15. LASIX [Concomitant]
     Dates: start: 20070312
  16. LIPITOR [Concomitant]
     Dates: start: 20070409
  17. BENICAR [Concomitant]
     Dates: start: 20070618
  18. K-DUR 10 [Concomitant]
     Dates: start: 20070412

REACTIONS (12)
  - ACIDOSIS [None]
  - BLOOD CREATININE INCREASED [None]
  - CRYPTOGENIC ORGANISING PNEUMONIA [None]
  - DYSPNOEA [None]
  - HYPERKALAEMIA [None]
  - INTUBATION [None]
  - MALAISE [None]
  - OEDEMA PERIPHERAL [None]
  - PCO2 INCREASED [None]
  - RESPIRATORY DEPRESSION [None]
  - SEPSIS [None]
  - WHITE BLOOD CELL COUNT INCREASED [None]
